FAERS Safety Report 4287137-5 (Version None)
Quarter: 2004Q1

REPORT INFORMATION
  Report Type: 
  Country: None (occurrence: None)
  Receive Date: 20040204
  Receipt Date: 20040121
  Transmission Date: 20041129
  Serious: Yes (Hospitalization)
  Sender: FDA-Public Use
  Company Number: 04P-144-0247890-00

PATIENT
  Age: 68 Year
  Sex: Female

DRUGS (5)
  1. HUMIRA [Suspect]
     Indication: RHEUMATOID ARTHRITIS
     Dosage: 1 IN 2 WK, SUBCUTANEOUS
     Route: 058
     Dates: start: 20030707, end: 20031124
  2. PREDNISONE [Concomitant]
  3. DOLOQUINE [Concomitant]
  4. RISEDRONATE SODIUM [Concomitant]
  5. CALCIUM  FORTE D [Concomitant]

REACTIONS (5)
  - AGITATION [None]
  - CONVULSION [None]
  - ENCEPHALITIS [None]
  - LYMPHOCYTOSIS [None]
  - PERSONALITY CHANGE [None]
